FAERS Safety Report 7928653-1 (Version None)
Quarter: 2011Q4

REPORT INFORMATION
  Report Type: 
  Country: None (occurrence: None)
  Receive Date: 20111118
  Receipt Date: 20111109
  Transmission Date: 20120403
  Serious: Yes (Other)
  Sender: FDA-Public Use
  Company Number: US-ABBOTT-11P-163-0873481-00

PATIENT
  Age: 48 Year
  Sex: Male

DRUGS (3)
  1. PREDNISONE TAB [Concomitant]
     Indication: PRODUCT USED FOR UNKNOWN INDICATION
  2. HUMIRA [Suspect]
     Indication: CROHN'S DISEASE
     Dates: start: 20090101, end: 20101101
  3. HUMIRA [Suspect]
     Dates: start: 20110901

REACTIONS (4)
  - POSTOPERATIVE WOUND INFECTION [None]
  - HYPERTENSION [None]
  - HERNIA [None]
  - CROHN'S DISEASE [None]
